FAERS Safety Report 9985631 (Version 1)
Quarter: 2014Q1

REPORT INFORMATION
  Report Type: Report from Study
  Country: US (occurrence: US)
  Receive Date: 20140307
  Receipt Date: 20140307
  Transmission Date: 20141002
  Serious: Yes (Other)
  Sender: FDA-Public Use
  Company Number: US-ABBVIE-14P-163-1206919-00

PATIENT
  Age: 47 Year
  Sex: Female
  Weight: 79.45 kg

DRUGS (9)
  1. HUMIRA [Suspect]
     Indication: ANKYLOSING SPONDYLITIS
     Dates: start: 201305
  2. CYMBALTA [Concomitant]
     Indication: FIBROMYALGIA
  3. TRAMADOL [Concomitant]
     Indication: FIBROMYALGIA
  4. TRAMADOL [Concomitant]
     Indication: OSTEOARTHRITIS
  5. FLEXERIL [Concomitant]
     Indication: OSTEOARTHRITIS
  6. VOLTAREN [Concomitant]
     Indication: OSTEOARTHRITIS
  7. PRILOSEC [Concomitant]
     Indication: GASTROOESOPHAGEAL REFLUX DISEASE
  8. VALIUM [Concomitant]
     Indication: PRODUCT USED FOR UNKNOWN INDICATION
  9. PROVENTIL [Concomitant]
     Indication: ASTHMA

REACTIONS (6)
  - Loss of consciousness [Recovered/Resolved]
  - Nephrolithiasis [Not Recovered/Not Resolved]
  - Abdominal pain lower [Unknown]
  - Pain [Recovering/Resolving]
  - Urinary tract infection [Unknown]
  - Uterine enlargement [Not Recovered/Not Resolved]
